FAERS Safety Report 11918314 (Version 1)
Quarter: 2016Q1

REPORT INFORMATION
  Report Type: Other
  Country: DE (occurrence: DE)
  Receive Date: 20160115
  Receipt Date: 20160115
  Transmission Date: 20160526
  Serious: No
  Sender: FDA-Public Use
  Company Number: DE-LUPIN PHARMACEUTICALS INC.-E2B_00004288

PATIENT
  Age: 48 Year
  Sex: Female
  Weight: 86 kg

DRUGS (1)
  1. SIMVASTATIN. [Suspect]
     Active Substance: SIMVASTATIN
     Indication: HYPERLIPIDAEMIA
     Route: 048
     Dates: start: 20150428, end: 20150512

REACTIONS (3)
  - Nausea [Recovered/Resolved]
  - Dizziness [Recovered/Resolved]
  - Abdominal pain upper [Recovered/Resolved]

NARRATIVE: CASE EVENT DATE: 20150505
